FAERS Safety Report 7075475-2 (Version None)
Quarter: 2010Q4

REPORT INFORMATION
  Report Type: 
  Country: None (occurrence: None)
  Receive Date: 20101030
  Receipt Date: 20101012
  Transmission Date: 20110411
  Serious: No
  Sender: FDA-Public Use
  Company Number: US-WYE-H17331210

PATIENT
  Sex: Female
  Weight: 59.02 kg

DRUGS (4)
  1. PRISTIQ [Suspect]
     Indication: ANXIETY
     Dates: start: 20090501, end: 20100301
  2. PRISTIQ [Suspect]
     Dates: start: 20100301
  3. CLONAZEPAM [Concomitant]
  4. BUSPAR [Concomitant]

REACTIONS (1)
  - DRUG EFFECT DECREASED [None]
